FAERS Safety Report 9778555 (Version 1)
Quarter: 2013Q4

REPORT INFORMATION
  Report Type: Spontaneous
  Country: US (occurrence: None)
  Receive Date: 20131220
  Receipt Date: 20131220
  Transmission Date: 20140711
  Serious: Yes (Hospitalization)
  Sender: FDA-Public Use
  Company Number: None

PATIENT
  Age: 74 Year
  Sex: Male
  Weight: 107.4 kg

DRUGS (1)
  1. CEPHALEXIN [Suspect]
     Route: 048
     Dates: start: 20131104, end: 20131109

REACTIONS (3)
  - Asthenia [None]
  - Cholestasis [None]
  - Cholangitis [None]
